FAERS Safety Report 8837000 (Version 1)
Quarter: 2012Q4

REPORT INFORMATION
  Report Type: Report from Study
  Country: HK (occurrence: HK)
  Receive Date: 20121011
  Receipt Date: 20121011
  Transmission Date: 20130627
  Serious: Yes (Hospitalization, Other)
  Sender: FDA-Public Use
  Company Number: HK-009507513-1210HKG003175

PATIENT
  Age: 65 Year
  Sex: Male

DRUGS (6)
  1. ZOCOR 10MG [Suspect]
     Dosage: UNK
     Dates: end: 20110723
  2. SAXAGLIPTIN [Suspect]
     Indication: TYPE 2 DIABETES MELLITUS
     Dosage: UNK
     Dates: start: 20110216, end: 20110717
  3. METFORMIN HYDROCHLORIDE [Suspect]
     Indication: DIABETES MELLITUS
     Dosage: 2000 mg, UNK
  4. MINIDIAB [Suspect]
     Indication: DIABETES MELLITUS
     Dosage: 5 mg, UNK
  5. UNSPECIFIED INGREDIENT [Suspect]
     Indication: TYPE 2 DIABETES MELLITUS
     Dosage: UNK
     Dates: start: 20110216
  6. ASPIRIN [Concomitant]

REACTIONS (1)
  - Polymyositis [Recovering/Resolving]
